FAERS Safety Report 9308694 (Version 1)
Quarter: 2013Q2

REPORT INFORMATION
  Report Type: Report from Study
  Country: CA (occurrence: CA)
  Receive Date: 20130524
  Receipt Date: 20130524
  Transmission Date: 20140414
  Serious: Yes (Hospitalization)
  Sender: FDA-Public Use
  Company Number: PHHO2012CA018719

PATIENT
  Age: 68 Year
  Sex: Male

DRUGS (17)
  1. AMIODARONE [Suspect]
     Indication: ARRHYTHMIA
     Dosage: 200 MG, DAILY
     Route: 048
  2. RANIBIZUMAB [Suspect]
     Indication: DIABETIC RETINAL OEDEMA
     Dosage: 0.5 UG, UNK
     Dates: start: 20120118, end: 20120118
  3. RANIBIZUMAB [Suspect]
     Dosage: 0.5 UG, UNK
     Dates: start: 20121010, end: 20121010
  4. METOPROLOL [Concomitant]
     Indication: HYPERTENSION
     Dosage: 50 MG, BID
     Route: 048
  5. FERROUS SULFATE [Concomitant]
     Indication: ANAEMIA
     Dosage: 300 MG, BID
     Route: 048
  6. NOVOLIN [Concomitant]
     Indication: TYPE 2 DIABETES MELLITUS
     Dosage: 58 U, DIE
     Route: 042
  7. NOVORAPID [Concomitant]
     Indication: TYPE 2 DIABETES MELLITUS
     Dosage: 27 U, TID
     Route: 042
  8. SENNOSIDE [Concomitant]
     Indication: CONSTIPATION
     Dosage: 8.6 MG, DIE
     Route: 048
  9. AAS [Concomitant]
     Indication: PROPHYLAXIS
     Dosage: 325 MG, DIE
     Route: 048
  10. COVERSYL                                /BEL/ [Concomitant]
     Indication: HYPERTENSION
     Dosage: 4 MG, DIE
     Route: 048
  11. ATORVASTATIN [Concomitant]
     Indication: HYPERLIPIDAEMIA
     Dosage: 80 MG, DIE
  12. ADVAIR [Concomitant]
     Dosage: 280 UG, BID (30+250MCG)
     Route: 048
     Dates: start: 20121102
  13. WARFARIN [Concomitant]
     Dosage: 4 MG, DIE
     Route: 048
  14. LYRICA [Concomitant]
     Indication: ANALGESIC THERAPY
     Dosage: 50 MG, DIE
     Dates: start: 20120416
  15. FLOVENT [Concomitant]
     Dosage: UNK
     Dates: start: 20120913
  16. NITRO [Concomitant]
     Indication: PROPHYLAXIS
     Dosage: 0.4 MG, PRN
     Dates: start: 20121102
  17. VENTOLIN                           /00942701/ [Concomitant]
     Dosage: 100 UG, PRN
     Dates: start: 20121102

REACTIONS (2)
  - Chronic obstructive pulmonary disease [Recovering/Resolving]
  - Hyperthyroidism [Recovered/Resolved]
